FAERS Safety Report 4339021-6 (Version None)
Quarter: 2004Q2

REPORT INFORMATION
  Report Type: 
  Country: None (occurrence: None)
  Receive Date: 20040412
  Receipt Date: 20040326
  Transmission Date: 20050107
  Serious: Yes (Hospitalization)
  Sender: FDA-Public Use
  Company Number: 192145

PATIENT
  Age: 45 Year
  Sex: Female

DRUGS (8)
  1. AVONEX [Suspect]
     Indication: MULTIPLE SCLEROSIS
     Dosage: 30 MCG QW IM
     Dates: start: 20010709
  2. AVONEX [Suspect]
     Indication: MULTIPLE SCLEROSIS
     Dosage: 30 MCG QW IM
  3. TRAZODONE HCL [Concomitant]
  4. GLUCOPHAGE ^UNS^ [Concomitant]
  5. PRILOSEC [Concomitant]
  6. NEURONTIN [Concomitant]
  7. VIOXX [Concomitant]
  8. ZANAFLEX [Concomitant]

REACTIONS (6)
  - CONDITION AGGRAVATED [None]
  - DIABETES MELLITUS INADEQUATE CONTROL [None]
  - DIPLOPIA [None]
  - MULTIPLE SCLEROSIS [None]
  - VISION BLURRED [None]
  - VOMITING [None]
